FAERS Safety Report 23626079 (Version 1)
Quarter: 2024Q1

REPORT INFORMATION
  Report Type: Spontaneous
  Country: AU (occurrence: None)
  Receive Date: 20240313
  Receipt Date: 20240313
  Transmission Date: 20240409
  Serious: Yes (Other)
  Sender: FDA-Public Use
  Company Number: 2024A060150

PATIENT
  Age: 61 Year
  Sex: Male

DRUGS (1)
  1. ROSUVASTATIN [Suspect]
     Active Substance: ROSUVASTATIN
     Indication: Blood cholesterol increased
     Dosage: 20.0 MILLIGRAM(S) (40 MILLIGRAM(S), 1 IN 48 HOUR)
     Route: 048
     Dates: end: 20230906

REACTIONS (5)
  - Acute kidney injury [Recovered/Resolved]
  - Rhabdomyolysis [Recovered/Resolved]
  - Blood creatine phosphokinase increased [Recovered/Resolved]
  - Myalgia [Recovered/Resolved]
  - Myopathy [Recovered/Resolved]

NARRATIVE: CASE EVENT DATE: 20230908
